FAERS Safety Report 10982986 (Version 1)
Quarter: 2015Q2

REPORT INFORMATION
  Report Type: Report from Study
  Country: AU (occurrence: AU)
  Receive Date: 20150403
  Receipt Date: 20150403
  Transmission Date: 20150821
  Serious: Yes (Hospitalization)
  Sender: FDA-Public Use
  Company Number: AU-BRISTOL-MYERS SQUIBB COMPANY-20255972

PATIENT
  Age: 78 Year
  Sex: Male
  Weight: 98 kg

DRUGS (10)
  1. NIVOLUMAB [Suspect]
     Active Substance: NIVOLUMAB
     Indication: METASTATIC MALIGNANT MELANOMA
     Dosage: 1DF: 3MG/KG OR 1MG NIVOLUMAB/PLACEBO
     Route: 042
     Dates: start: 20131114
  2. IPILIMUMAB [Suspect]
     Active Substance: IPILIMUMAB
     Indication: METASTATIC MALIGNANT MELANOMA
     Route: 042
  3. COAL TAR. [Concomitant]
     Active Substance: COAL TAR
     Dosage: UNK
     Route: 061
     Dates: start: 20140128
  4. PHENERGAN [Concomitant]
     Active Substance: PROMETHAZINE HYDROCHLORIDE
     Dosage: UNK
     Dates: start: 20140128
  5. MICARDIS PLUS [Concomitant]
     Active Substance: HYDROCHLOROTHIAZIDE\TELMISARTAN
     Dosage: UNK
     Dates: start: 2009
  6. BETAMETHASONE [Concomitant]
     Active Substance: BETAMETHASONE
     Dosage: 1DF: 0.5MG/G
     Dates: start: 20140206
  7. PANADOL [Concomitant]
     Active Substance: ACETAMINOPHEN
     Dosage: PANADOL OSTEO
     Dates: start: 2009
  8. THYROXINE [Concomitant]
     Active Substance: LEVOTHYROXINE
     Dosage: UNK
     Dates: start: 20140214
  9. LORATADINE. [Concomitant]
     Active Substance: LORATADINE
     Dosage: UNK
     Dates: start: 20140116
  10. CALAMINE LOTION [Concomitant]
     Active Substance: CALAMINE LOTION
     Dosage: UNK
     Dates: start: 20140128

REACTIONS (1)
  - Hypothyroidism [Recovered/Resolved]

NARRATIVE: CASE EVENT DATE: 20140217
